FAERS Safety Report 8526502 (Version 7)
Quarter: 2012Q4

REPORT INFORMATION
  Report Type: 
  Country: US (occurrence: US)
  Receive Date: 20120423
  Receipt Date: 20121207
  Transmission Date: 20130627
  Serious: Yes (Other)
  Sender: FDA-Public Use
  Company Number: US-PERRIGO-12US002988

PATIENT
  Age: 65 None
  Sex: Female
  Weight: 78.91 kg

DRUGS (9)
  1. MUSCLE ULTR CRM 049 [Suspect]
     Indication: ARTHRALGIA
     Dosage: Thin layer covered knee and leg on right leg
     Route: 061
     Dates: start: 20120329, end: 20120329
  2. LORTAB [Concomitant]
     Indication: ARTHRALGIA
     Dosage: UNK
     Route: 065
     Dates: start: 2010
  3. ALENDRONATE SODIUM [Concomitant]
     Indication: PRODUCT USED FOR UNKNOWN INDICATION
     Dosage: UNK
     Route: 048
  4. IBUPROFEN [Concomitant]
     Indication: PRODUCT USED FOR UNKNOWN INDICATION
     Dosage: 800mg
     Route: 048
  5. LISINOPRIL [Concomitant]
     Indication: PRODUCT USED FOR UNKNOWN INDICATION
     Dosage: 20mg
     Route: 048
  6. MECLIZINE [Concomitant]
     Indication: PRODUCT USED FOR UNKNOWN INDICATION
     Dosage: UNK
     Route: 048
  7. OXYBUTYNIN [Concomitant]
     Indication: PRODUCT USED FOR UNKNOWN INDICATION
     Dosage: UNK
     Route: 048
  8. POTASSIUM CHLORIDE [Concomitant]
     Indication: PRODUCT USED FOR UNKNOWN INDICATION
     Dosage: UNK
     Route: 065
  9. LETROZOLE [Concomitant]
     Indication: PRODUCT USED FOR UNKNOWN INDICATION
     Dosage: UNK
     Route: 048

REACTIONS (8)
  - Burns second degree [Unknown]
  - Application site vesicles [Recovering/Resolving]
  - Hypersensitivity [Unknown]
  - Application site erythema [Recovering/Resolving]
  - Application site pain [Unknown]
  - Oedema peripheral [Unknown]
  - Pain [Unknown]
  - Scar [Unknown]
